FAERS Safety Report 6193988-2 (Version None)
Quarter: 2009Q2

REPORT INFORMATION
  Report Type: 
  Country: None (occurrence: None)
  Receive Date: 20090518
  Receipt Date: 20090514
  Transmission Date: 20091009
  Serious: Yes (Death, Hospitalization)
  Sender: FDA-Public Use
  Company Number: PHHY2009MX17774

PATIENT
  Age: 56 Year
  Sex: Female

DRUGS (1)
  1. DIOVAN [Suspect]
     Indication: HYPERTENSION
     Dosage: 160 MG, QD
     Route: 048
     Dates: start: 20070601, end: 20090401

REACTIONS (4)
  - BRONCHITIS [None]
  - DEHYDRATION [None]
  - METABOLIC DISORDER [None]
  - PULMONARY CONGESTION [None]
